FAERS Safety Report 10250552 (Version 2)
Quarter: 2014Q3

REPORT INFORMATION
  Report Type: Spontaneous
  Country: US (occurrence: US)
  Receive Date: 20140620
  Receipt Date: 20140919
  Transmission Date: 20150326
  Serious: Yes (Hospitalization)
  Sender: FDA-Public Use
  Company Number: US-GLAXOSMITHKLINE-A1077105A

PATIENT
  Age: 58 Year
  Sex: Female

DRUGS (10)
  1. LORATADINE. [Concomitant]
     Active Substance: LORATADINE
  2. FELODIPINE. [Concomitant]
     Active Substance: FELODIPINE
  3. DEXILANT [Concomitant]
     Active Substance: DEXLANSOPRAZOLE
  4. ATORVASTATIN [Concomitant]
     Active Substance: ATORVASTATIN
  5. CALTRATE+VITAMIN D [Concomitant]
  6. LOVAZA [Suspect]
     Active Substance: OMEGA-3-ACID ETHYL ESTERS
     Indication: BLOOD TRIGLYCERIDES INCREASED
     Dosage: 2CAPL TWICE PER DAY
     Route: 048
     Dates: start: 201206
  7. CARVEDILOL. [Concomitant]
     Active Substance: CARVEDILOL
  8. IRON TABLET [Concomitant]
     Active Substance: IRON
  9. BABY ASPIRIN [Concomitant]
     Active Substance: ASPIRIN
  10. OMEPRAZOLE. [Concomitant]
     Active Substance: OMEPRAZOLE

REACTIONS (12)
  - Fatigue [Unknown]
  - Amnesia [Unknown]
  - Oxygen saturation decreased [Unknown]
  - Gastrointestinal disorder [Unknown]
  - Haemorrhage [Unknown]
  - Feeling abnormal [Unknown]
  - Ulcer [Unknown]
  - Cardiac arrest [Unknown]
  - Myocardial infarction [Unknown]
  - Abdominal hernia [Recovering/Resolving]
  - Malaise [Unknown]
  - Anaemia [Unknown]

NARRATIVE: CASE EVENT DATE: 201402
